FAERS Safety Report 8311239 (Version 3)
Quarter: 2014Q1

REPORT INFORMATION
  Report Type: Spontaneous
  Country: US (occurrence: US)
  Receive Date: 20111227
  Receipt Date: 20140114
  Transmission Date: 20141002
  Serious: Yes (Hospitalization, Other)
  Sender: FDA-Public Use
  Company Number: US-BAYER-2011-122202

PATIENT
  Age: 35 Year
  Sex: Female

DRUGS (5)
  1. YAZ [Suspect]
     Indication: CONTRACEPTION
     Dosage: UNK
     Route: 048
     Dates: start: 200903, end: 201004
  2. YAZ [Suspect]
     Indication: MENSTRUAL CYCLE MANAGEMENT
  3. SUMATRIPTAN [Concomitant]
  4. LISINOPRIL [Concomitant]
     Dosage: 10 MG, UNK
     Dates: start: 20090316, end: 20100725
  5. IMITREX [Concomitant]
     Dosage: UNK UNK, PRN

REACTIONS (9)
  - Gallbladder disorder [None]
  - Cholelithiasis [None]
  - Injury [None]
  - Pain [None]
  - Anxiety [None]
  - Emotional distress [None]
  - Fear [None]
  - Psychological trauma [None]
  - Abdominal pain [None]
